FAERS Safety Report 4926514-3 (Version None)
Quarter: 2006Q1

REPORT INFORMATION
  Report Type: 
  Country: None (occurrence: None)
  Receive Date: 20060228
  Receipt Date: 20050422
  Transmission Date: 20060701
  Serious: No
  Sender: FDA-Public Use
  Company Number: US-GLAXOSMITHKLINE-A0555384A

PATIENT
  Age: 50 Year
  Sex: Female
  Weight: 72.7 kg

DRUGS (4)
  1. LAMICTAL [Suspect]
     Indication: BIPOLAR DISORDER
     Dosage: 125MG IN THE MORNING
     Route: 048
     Dates: start: 20050320
  2. EFFEXOR [Concomitant]
  3. RISPERDAL [Concomitant]
  4. KLONOPIN [Concomitant]

REACTIONS (1)
  - ARTHRITIS [None]
